FAERS Safety Report 4849115-4 (Version None)
Quarter: 2005Q4

REPORT INFORMATION
  Report Type: 
  Country: None (occurrence: None)
  Receive Date: 20051209
  Receipt Date: 20051202
  Transmission Date: 20060501
  Serious: Yes (Other)
  Sender: FDA-Public Use
  Company Number: FR-GLAXOSMITHKLINE-B0402349A

PATIENT
  Age: 78 Year
  Sex: Male

DRUGS (5)
  1. AVODART [Suspect]
     Indication: BENIGN PROSTATIC HYPERPLASIA
     Dosage: .5MG PER DAY
     Route: 048
     Dates: start: 20041001
  2. LOXEN [Concomitant]
  3. SOTALOL [Concomitant]
  4. HYPERIUM [Concomitant]
  5. LEXOMIL [Concomitant]

REACTIONS (1)
  - THROMBOCYTOPENIA [None]
